FAERS Safety Report 9015210 (Version 1)
Quarter: 2013Q1

REPORT INFORMATION
  Report Type: Spontaneous
  Country: US (occurrence: None)
  Receive Date: 20130103
  Receipt Date: 20130103
  Transmission Date: 20140127
  Serious: Yes (Life-Threatening, Other)
  Sender: FDA-Public Use
  Company Number: 001440908A

PATIENT
  Sex: Female

DRUGS (3)
  1. AVOBENZONE\OCTISALATE [Suspect]
     Dates: start: 20121203, end: 20121204
  2. SKIN BRIGHTENING DECOLLETE AND NECK TREATMENT SPF 15 [Suspect]
  3. ANTIHYPERTENSIVE AND VITAMIN [Concomitant]

REACTIONS (5)
  - Pruritus [None]
  - Eye swelling [None]
  - Local swelling [None]
  - Headache [None]
  - Throat tightness [None]
